FAERS Safety Report 9422724 (Version 1)
Quarter: 2013Q3

REPORT INFORMATION
  Report Type: Spontaneous
  Country: US (occurrence: None)
  Receive Date: 20130724
  Receipt Date: 20130724
  Transmission Date: 20140515
  Serious: Yes (Other)
  Sender: FDA-Public Use
  Company Number: USA/USA/13/0032689

PATIENT
  Sex: Female

DRUGS (3)
  1. OMEPRAZOLE MAGNESIUM [Suspect]
     Indication: DYSPEPSIA
     Route: 048
  2. OMEPRAZOLE MAGNESIUM [Suspect]
     Indication: ABNORMAL FAECES
     Route: 048
  3. BUTALBITAL (BUTALBITAL) [Concomitant]

REACTIONS (1)
  - Hepatitis C [None]
